FAERS Safety Report 10366862 (Version 1)
Quarter: 2014Q3

REPORT INFORMATION
  Report Type: Spontaneous
  Country: US (occurrence: US)
  Receive Date: 20140807
  Receipt Date: 20140807
  Transmission Date: 20150326
  Serious: Yes (Hospitalization)
  Sender: FDA-Public Use
  Company Number: US-ROCHE-1444651

PATIENT
  Sex: Female

DRUGS (4)
  1. TAXOTERE [Suspect]
     Active Substance: DOCETAXEL
     Indication: HER-2 POSITIVE BREAST CANCER
     Route: 065
     Dates: start: 20121126, end: 201308
  2. PERJETA [Suspect]
     Active Substance: PERTUZUMAB
     Indication: HER-2 POSITIVE BREAST CANCER
     Route: 065
     Dates: start: 20121126
  3. KADCYLA [Suspect]
     Active Substance: ADO-TRASTUZUMAB EMTANSINE
     Indication: HER-2 POSITIVE BREAST CANCER
     Dosage: AUG/2013 - 1 1/2 HOUR INFUSIONS?MARCH 2014 - 1/2 HOUR INFUSIONS WITH REACTION - STOPPED THE INFUSION
     Route: 065
  4. HERCEPTIN [Suspect]
     Active Substance: TRASTUZUMAB
     Indication: HER-2 POSITIVE BREAST CANCER
     Route: 065
     Dates: start: 20121126

REACTIONS (15)
  - Infusion related reaction [Recovered/Resolved]
  - Rash [Recovered/Resolved]
  - Syncope [Recovered/Resolved]
  - Burning sensation [Recovered/Resolved]
  - Migraine with aura [Recovered/Resolved]
  - Skin warm [Recovered/Resolved]
  - Blindness [Recovered/Resolved]
  - Hypoaesthesia [Recovered/Resolved]
  - Malaise [Recovered/Resolved]
  - Flushing [Recovered/Resolved]
  - Folliculitis [Recovered/Resolved]
  - Dyspnoea [Recovered/Resolved]
  - Candida infection [Recovered/Resolved]
  - Chest pain [Recovered/Resolved]
  - White blood cell count decreased [Recovered/Resolved]
